FAERS Safety Report 10713225 (Version 1)
Quarter: 2015Q1

REPORT INFORMATION
  Report Type: Spontaneous
  Country: US (occurrence: None)
  Receive Date: 20150115
  Receipt Date: 20150115
  Transmission Date: 20150721
  Serious: No
  Sender: FDA-Public Use
  Company Number: None

PATIENT
  Age: 35 Year
  Sex: Male
  Weight: 81.65 kg

DRUGS (1)
  1. LEVOFLOXACIN. [Suspect]
     Active Substance: LEVOFLOXACIN
     Indication: PNEUMONIA
     Dosage: ONCE DAILY
     Route: 048
     Dates: start: 20150111

REACTIONS (8)
  - Dry eye [None]
  - Tremor [None]
  - Tendon pain [None]
  - Asthenia [None]
  - Eye pain [None]
  - Gastrointestinal disorder [None]
  - Mental disorder [None]
  - Hallucination [None]

NARRATIVE: CASE EVENT DATE: 20150111
